FAERS Safety Report 6073375-8 (Version None)
Quarter: 2009Q1

REPORT INFORMATION
  Report Type: 
  Country: None (occurrence: None)
  Receive Date: 20090211
  Receipt Date: 20090202
  Transmission Date: 20090719
  Serious: Yes (Death, Other)
  Sender: FDA-Public Use
  Company Number: CA-WYE-G03058709

PATIENT
  Sex: Male

DRUGS (2)
  1. VENLAFAXINE HYDROCHLORIDE [Suspect]
     Indication: ANXIETY DISORDER
  2. WELLBUTRIN [Concomitant]
     Indication: ANXIETY DISORDER

REACTIONS (10)
  - DRUG LEVEL ABOVE THERAPEUTIC [None]
  - DYSPNOEA [None]
  - ERYTHEMA [None]
  - EYE ROLLING [None]
  - FALL [None]
  - HAEMOTHORAX [None]
  - HYPERHIDROSIS [None]
  - HYPERTROPHIC CARDIOMYOPATHY [None]
  - LACERATION [None]
  - RIB FRACTURE [None]
